FAERS Safety Report 16894017 (Version 15)
Quarter: 2021Q1

REPORT INFORMATION
  Report Type: Spontaneous
  Country: JP (occurrence: JP)
  Receive Date: 20191008
  Receipt Date: 20210330
  Transmission Date: 20210419
  Serious: Yes (Death, Hospitalization, Other)
  Sender: FDA-Public Use
  Company Number: JP-AMGEN-JPNSP2019163384

PATIENT
  Age: 50 Year
  Sex: Male
  Weight: 102.6 kg

DRUGS (21)
  1. PARSABIV [Suspect]
     Active Substance: ETELCALCETIDE HYDROCHLORIDE
     Dosage: 15 MILLIGRAM, 3 TIMES/WK
     Route: 010
     Dates: start: 20200406, end: 20200713
  2. MAXACALCITOL [Concomitant]
     Active Substance: MAXACALCITOL
     Dosage: 10 MICROGRAM, 3 TIMES/WK
     Route: 010
     Dates: start: 20190802, end: 20200131
  3. RENAGEL [Concomitant]
     Active Substance: SEVELAMER HYDROCHLORIDE
     Dosage: 2000 MILLIGRAM, Q8H
     Route: 048
     Dates: end: 20200811
  4. PARSABIV [Suspect]
     Active Substance: ETELCALCETIDE HYDROCHLORIDE
     Dosage: 10 MILLIGRAM, 3 TIMES/WK
     Route: 010
     Dates: start: 20190902, end: 20200403
  5. HEPARIN SODIUM. [Concomitant]
     Active Substance: HEPARIN SODIUM
     Dosage: UNK
     Route: 065
  6. MAXACALCITOL [Concomitant]
     Active Substance: MAXACALCITOL
     Dosage: 20 MICROGRAM, 3 TIMES/WK
     Route: 010
     Dates: start: 20190201, end: 20190729
  7. MAXACALCITOL [Concomitant]
     Active Substance: MAXACALCITOL
     Dosage: 15 MICROGRAM, 3 TIMES/WK
     Route: 010
     Dates: start: 20200203, end: 20200710
  8. TAKECAB [Concomitant]
     Active Substance: VONOPRAZAN FUMARATE
     Dosage: 10 MG
     Route: 048
  9. ALPROSTADIL. [Concomitant]
     Active Substance: ALPROSTADIL
     Dosage: 10 UG
     Route: 010
     Dates: start: 20190426
  10. MAXACALCITOL [Concomitant]
     Active Substance: MAXACALCITOL
     Dosage: 10 MICROGRAM, 3 TIMES/WK
     Route: 010
     Dates: end: 20190130
  11. HERBESSER [Concomitant]
     Active Substance: DILTIAZEM HYDROCHLORIDE
     Dosage: 100 MG
     Route: 048
     Dates: end: 20200811
  12. PARSABIV [Suspect]
     Active Substance: ETELCALCETIDE HYDROCHLORIDE
     Dosage: 10 MILLIGRAM, 3 TIMES/WK
     Route: 010
     Dates: start: 20200716, end: 20200808
  13. DALTEPARIN NA [Concomitant]
     Active Substance: DALTEPARIN SODIUM
     Dosage: 5000 IU
     Route: 010
     Dates: end: 20200808
  14. L CARTIN FF [Concomitant]
     Active Substance: LEVOCARNITINE
     Dosage: 1000 IU
     Route: 010
     Dates: end: 20200808
  15. PARSABIV [Suspect]
     Active Substance: ETELCALCETIDE HYDROCHLORIDE
     Indication: HYPERPARATHYROIDISM SECONDARY
     Dosage: 5 MILLIGRAM, 3 TIMES/WK
     Route: 010
     Dates: start: 20190809, end: 20190830
  16. NESP [Concomitant]
     Active Substance: DARBEPOETIN ALFA
     Dosage: 80 UG, Q4W
     Route: 065
  17. BAYASPIRIN [Concomitant]
     Active Substance: ASPIRIN
     Dosage: 100 MG
     Route: 048
  18. AMLODIPINE [Concomitant]
     Active Substance: AMLODIPINE BESYLATE
     Dosage: 10 MG, EVERYDAY
     Route: 048
     Dates: end: 20200811
  19. MAXACALCITOL [Concomitant]
     Active Substance: MAXACALCITOL
     Dosage: 20 MICROGRAM, 3 TIMES/WK
     Route: 010
     Dates: start: 20200713, end: 20200808
  20. CILOSTAZOL. [Concomitant]
     Active Substance: CILOSTAZOL
     Dosage: 100 MILLIGRAM, Q12H
     Route: 048
  21. TAKELDA [Concomitant]
     Active Substance: ASPIRIN\LANSOPRAZOLE
     Dosage: 1 DF, EVERYDAY
     Route: 048
     Dates: start: 20200205, end: 20200811

REACTIONS (3)
  - Ventricular tachycardia [Recovering/Resolving]
  - Sudden death [Fatal]
  - Shunt aneurysm [Recovering/Resolving]

NARRATIVE: CASE EVENT DATE: 20190814
